FAERS Safety Report 8259408-9 (Version None)
Quarter: 2012Q2

REPORT INFORMATION
  Report Type: 
  Country: None (occurrence: None)
  Receive Date: 20120404
  Receipt Date: 20120326
  Transmission Date: 20120825
  Serious: Yes (Hospitalization, Other)
  Sender: FDA-Public Use
  Company Number: US-ASTRAZENECA-2010SE07101

PATIENT
  Age: 58 Year
  Sex: Female
  Weight: 90.7 kg

DRUGS (7)
  1. GABAPENTIN [Concomitant]
  2. BENAZEPRIL HYDROCHLORIDE [Concomitant]
  3. RANITIDINE [Suspect]
     Route: 065
  4. HYDROXYZINE [Concomitant]
  5. NEXIUM [Suspect]
     Route: 048
     Dates: start: 20000101, end: 20090601
  6. OMEPRAZOLE [Suspect]
     Route: 048
  7. BLOOD PRESSURE PILL [Concomitant]

REACTIONS (17)
  - APHAGIA [None]
  - PAIN [None]
  - OESOPHAGEAL DISORDER [None]
  - CEREBROVASCULAR ACCIDENT [None]
  - WEIGHT INCREASED [None]
  - PANCREATIC DISORDER [None]
  - DYSPEPSIA [None]
  - DYSPHAGIA [None]
  - NAUSEA [None]
  - VOMITING [None]
  - HAEMOPTYSIS [None]
  - GASTROOESOPHAGEAL REFLUX DISEASE [None]
  - ASTHENIA [None]
  - INTENTIONAL DRUG MISUSE [None]
  - HAEMATEMESIS [None]
  - ABDOMINAL PAIN [None]
  - MALAISE [None]
